FAERS Safety Report 7703517-7 (Version None)
Quarter: 2011Q3

REPORT INFORMATION
  Report Type: 
  Country: None (occurrence: None)
  Receive Date: 20110823
  Receipt Date: 20110809
  Transmission Date: 20111222
  Serious: No
  Sender: FDA-Public Use
  Company Number: US-B.I. PHARMACEUTICALS,INC./RIDGEFIELD-2011-BP-15284BP

PATIENT
  Sex: Male

DRUGS (6)
  1. WARFARIN SODIUM [Concomitant]
  2. PRADAXA [Suspect]
     Indication: ATRIAL FIBRILLATION
     Dosage: 300 MG
     Route: 048
     Dates: start: 20110401, end: 20110501
  3. HYDROCORTISONE [Concomitant]
     Dosage: 25 MG
  4. METOPROLOL [Concomitant]
  5. PRAVASTATIN [Concomitant]
  6. CLONAZEPAM [Concomitant]

REACTIONS (3)
  - ABDOMINAL PAIN LOWER [None]
  - HAEMORRHOIDAL HAEMORRHAGE [None]
  - CONSTIPATION [None]
